FAERS Safety Report 23769010 (Version 1)
Quarter: 2024Q2

REPORT INFORMATION
  Report Type: Spontaneous
  Country: CN (occurrence: CN)
  Receive Date: 20240422
  Receipt Date: 20240422
  Transmission Date: 20240715
  Serious: Yes (Hospitalization, Other)
  Sender: FDA-Public Use
  Company Number: CN-BAYER-2024A059700

PATIENT
  Age: 50 Year
  Sex: Female
  Weight: 40 kg

DRUGS (3)
  1. GLUCOBAY [Interacting]
     Active Substance: ACARBOSE
     Indication: Type 2 diabetes mellitus
     Dosage: 100 MG, OM
     Route: 048
     Dates: start: 20240406, end: 20240416
  2. LINAGLIPTIN [Interacting]
     Active Substance: LINAGLIPTIN
     Indication: Type 2 diabetes mellitus
     Dosage: 5 MG, QD, EVERY MORNING
     Route: 048
     Dates: start: 20240406, end: 20240416
  3. INSULIN GLARGINE [Interacting]
     Active Substance: INSULIN GLARGINE
     Indication: Type 2 diabetes mellitus
     Dosage: 6 U, HS
     Route: 058
     Dates: start: 20240406, end: 20240416

REACTIONS (3)
  - Hypoglycaemia [Recovering/Resolving]
  - Depressed level of consciousness [Recovered/Resolved]
  - Hyperhidrosis [None]

NARRATIVE: CASE EVENT DATE: 20240416
